FAERS Safety Report 10050622 (Version 1)
Quarter: 2014Q2

REPORT INFORMATION
  Report Type: Spontaneous
  Country: US (occurrence: US)
  Receive Date: 20140401
  Receipt Date: 20140401
  Transmission Date: 20141212
  Serious: No
  Sender: FDA-Public Use
  Company Number: US-ASTRAZENECA-2013SE60577

PATIENT
  Age: 68 Year
  Sex: Female
  Weight: 68.9 kg

DRUGS (9)
  1. NEXIUM [Suspect]
     Indication: GASTROOESOPHAGEAL REFLUX DISEASE
     Route: 048
     Dates: start: 1996
  2. CALCIUM [Concomitant]
     Indication: BONE DENSITY DECREASED
     Route: 048
     Dates: start: 200907
  3. VITAMIN D [Concomitant]
     Indication: VITAMIN D DEFICIENCY
     Route: 048
     Dates: start: 2009
  4. LIPITOR [Concomitant]
     Indication: BLOOD CHOLESTEROL ABNORMAL
     Route: 048
     Dates: start: 2011, end: 201302
  5. GLUCOSAMINE AND MSM [Concomitant]
     Indication: ARTHRITIS
     Route: 048
     Dates: start: 2010
  6. VITAMIN B12 [Concomitant]
     Indication: SUPPLEMENTATION THERAPY
     Route: 048
  7. CELEBREX [Concomitant]
     Indication: ARTHRITIS
     Route: 048
     Dates: start: 2008
  8. MAXITEAR DRY EYE FORMULA [Concomitant]
     Indication: DRY EYE
     Route: 048
     Dates: start: 201303
  9. MOISTURIZING EYE DROPS [Concomitant]
     Indication: DRY EYE
     Dosage: UNKNOWN OID
     Route: 050

REACTIONS (8)
  - Muscle spasms [Recovered/Resolved]
  - Bone loss [Not Recovered/Not Resolved]
  - Memory impairment [Not Recovered/Not Resolved]
  - Arthritis [Not Recovered/Not Resolved]
  - Vertigo [Recovered/Resolved]
  - Dizziness [Not Recovered/Not Resolved]
  - Alopecia [Not Recovered/Not Resolved]
  - Blood magnesium decreased [Recovered/Resolved]
